FAERS Safety Report 10452062 (Version 1)
Quarter: 2014Q3

REPORT INFORMATION
  Report Type: Spontaneous
  Country: US (occurrence: None)
  Receive Date: 20140912
  Receipt Date: 20140912
  Transmission Date: 20150326
  Serious: Yes (Death)
  Sender: FDA-Public Use
  Company Number: None

PATIENT
  Age: 65 Year
  Sex: Male
  Weight: 118.84 kg

DRUGS (18)
  1. TRAMADOL [Concomitant]
     Active Substance: TRAMADOL
  2. METFORMIN [Concomitant]
     Active Substance: METFORMIN HYDROCHLORIDE
  3. ASPIRIN. [Concomitant]
     Active Substance: ASPIRIN
  4. THERAPEUTIC M [Concomitant]
  5. COGENTIN [Concomitant]
     Active Substance: BENZTROPINE MESYLATE
  6. GEODON [Concomitant]
     Active Substance: ZIPRASIDONE HYDROCHLORIDE\ZIPRASIDONE MESYLATE
  7. ATIVAN [Concomitant]
     Active Substance: LORAZEPAM
  8. LISINOPRIL. [Concomitant]
     Active Substance: LISINOPRIL
  9. VALPROIC ACID 250MG/5ML QUALITEST [Suspect]
     Active Substance: VALPROIC ACID
     Indication: AFFECTIVE DISORDER
     Route: 048
     Dates: start: 20111012, end: 20140713
  10. PIOGLITAZONE [Concomitant]
     Active Substance: PIOGLITAZONE
  11. SEROQUEL [Concomitant]
     Active Substance: QUETIAPINE FUMARATE
  12. SYNTHROID [Concomitant]
     Active Substance: LEVOTHYROXINE SODIUM
  13. METOPROLOL [Concomitant]
     Active Substance: METOPROLOL
  14. VITAMIN D3 [Concomitant]
     Active Substance: CHOLECALCIFEROL
  15. VISTARIL [Concomitant]
     Active Substance: HYDROXYZINE PAMOATE
  16. PRILOSEC [Concomitant]
     Active Substance: OMEPRAZOLE MAGNESIUM
  17. HCTZ [Concomitant]
     Active Substance: HYDROCHLOROTHIAZIDE
  18. ZOCOR [Concomitant]
     Active Substance: SIMVASTATIN

REACTIONS (6)
  - Abdominal pain upper [None]
  - Vomiting [None]
  - Nausea [None]
  - Unresponsive to stimuli [None]
  - Pain [None]
  - Pancreatitis haemorrhagic [None]

NARRATIVE: CASE EVENT DATE: 20140713
